FAERS Safety Report 5335709-9 (Version None)
Quarter: 2007Q1

REPORT INFORMATION
  Report Type: 
  Country: None (occurrence: None)
  Receive Date: 20070322
  Receipt Date: 20070116
  Transmission Date: 20070707
  Serious: No
  Sender: FDA-Public Use
  Company Number: 2007US000154

PATIENT
  Age: 70 Year
  Sex: Female

DRUGS (3)
  1. VESICARE [Suspect]
     Indication: MICTURITION URGENCY
     Dosage: 5 MG, UNK, ORAL
     Route: 048
     Dates: start: 20061215
  2. CLONIDINE [Concomitant]
  3. BALAMINE [Concomitant]

REACTIONS (3)
  - DIZZINESS [None]
  - FATIGUE [None]
  - OEDEMA PERIPHERAL [None]
